FAERS Safety Report 13338880 (Version 1)
Quarter: 2017Q1

REPORT INFORMATION
  Report Type: Spontaneous
  Country: KR (occurrence: KR)
  Receive Date: 20170315
  Receipt Date: 20170315
  Transmission Date: 20170428
  Serious: Yes (Other)
  Sender: FDA-Public Use
  Company Number: KR-009507513-1703KOR005808

PATIENT
  Sex: Male

DRUGS (2)
  1. COZAAR PLUS [Suspect]
     Active Substance: HYDROCHLOROTHIAZIDE\LOSARTAN POTASSIUM
     Dosage: UNK
     Route: 048
     Dates: start: 2007
  2. IRON (UNSPECIFIED) [Suspect]
     Active Substance: IRON
     Dosage: UNK
     Dates: start: 201609

REACTIONS (2)
  - Intestinal haemorrhage [Unknown]
  - Blood pressure systolic increased [Unknown]

NARRATIVE: CASE EVENT DATE: 20160910
